FAERS Safety Report 4781692-4 (Version None)
Quarter: 2005Q3

REPORT INFORMATION
  Report Type: 
  Country: None (occurrence: None)
  Receive Date: 20050927
  Receipt Date: 20050914
  Transmission Date: 20060218
  Serious: Yes (Hospitalization)
  Sender: FDA-Public Use
  Company Number: DSA_27095_2005

PATIENT
  Age: 59 Year
  Sex: Female

DRUGS (5)
  1. TEMESTA [Suspect]
     Dosage: 1 MG Q DAY PO
     Route: 048
  2. LEVOTHYROX [Suspect]
     Indication: HYPOTHYROIDISM
     Dosage: DF PO
     Route: 048
     Dates: start: 20040101
  3. MEDIATOR [Suspect]
     Dosage: 1 DF Q DAY PO
     Route: 048
  4. VASTAREL [Suspect]
     Dosage: DF
     Dates: end: 20050802
  5. VASTEN [Suspect]
     Dosage: 40 MG Q DAY

REACTIONS (2)
  - PAPILLOEDEMA [None]
  - VISUAL ACUITY REDUCED [None]
